FAERS Safety Report 13259109 (Version 2)
Quarter: 2017Q1

REPORT INFORMATION
  Report Type: Spontaneous
  Country: JP (occurrence: JP)
  Receive Date: 20170222
  Receipt Date: 20170315
  Transmission Date: 20170428
  Serious: Yes (Hospitalization, Other)
  Sender: FDA-Public Use
  Company Number: JP-GLAXOSMITHKLINE-JP2017JPN003109

PATIENT
  Age: 16 Year
  Sex: Male
  Weight: 48 kg

DRUGS (2)
  1. LAMICTAL [Suspect]
     Active Substance: LAMOTRIGINE
     Indication: BIPOLAR I DISORDER
     Dosage: 25 MG, 1D
     Route: 048
     Dates: start: 20121019
  2. ORAP [Concomitant]
     Active Substance: PIMOZIDE
     Dosage: 1 MG, QD
     Dates: start: 20121019

REACTIONS (2)
  - Pneumonia mycoplasmal [Recovered/Resolved]
  - Stevens-Johnson syndrome [Recovering/Resolving]

NARRATIVE: CASE EVENT DATE: 20121122
